FAERS Safety Report 5173257-X (Version None)
Quarter: 2006Q4

REPORT INFORMATION
  Report Type: 
  Country: None (occurrence: None)
  Receive Date: 20061214
  Receipt Date: 20061204
  Transmission Date: 20070319
  Serious: Yes (Hospitalization)
  Sender: FDA-Public Use
  Company Number: PHBS2006FR18790

PATIENT
  Age: 31 Year
  Sex: Male

DRUGS (9)
  1. CLOZAPINE [Suspect]
     Indication: SCHIZOPHRENIA
     Dosage: 200 MG, BID
  2. ALPRAZOLAM [Concomitant]
     Indication: SCHIZOPHRENIA
     Dosage: 0.25 MG, BID
  3. THIOPENTAL SODIUM [Suspect]
     Dosage: 500 MG, ONCE/SINGLE
  4. SUFENTANIL CITRATE [Suspect]
     Dosage: 15 UG, ONCE/SINGLE
  5. SUFENTANIL CITRATE [Suspect]
     Dosage: 10 UG, ONCE/SINGLE
  6. ATRACURIUM BESYLATE [Suspect]
     Dosage: 40 MG, ONCE/SINGLE
  7. ROPIVACAINE [Concomitant]
     Dosage: 30 ML
  8. DESFLURANE [Concomitant]
     Dosage: 0.8 MAC CORRECTED FOR AGE
  9. NITROUS OXIDE W/ OXYGEN [Concomitant]

REACTIONS (4)
  - ACCIDENT [None]
  - DELAYED RECOVERY FROM ANAESTHESIA [None]
  - HIP FRACTURE [None]
  - HIP SURGERY [None]
